FAERS Safety Report 9183150 (Version 2)
Quarter: 2013Q3

REPORT INFORMATION
  Report Type: Report from Study
  Country: US (occurrence: US)
  Receive Date: 20121030
  Receipt Date: 20130903
  Transmission Date: 20140515
  Serious: Yes (Other)
  Sender: FDA-Public Use
  Company Number: PHEH2012US020989

PATIENT
  Sex: Male

DRUGS (1)
  1. EXFORGE HCT [Suspect]
     Dosage: 1 DF (320MG VALS/ 10MG AMLO /25MG HYDR), QD
     Route: 048

REACTIONS (6)
  - Cataract [Unknown]
  - Impaired healing [Unknown]
  - Diabetic eye disease [Unknown]
  - Retinal scar [Unknown]
  - Visual impairment [Unknown]
  - Metamorphopsia [Unknown]
